FAERS Safety Report 9379124 (Version 1)
Quarter: 2013Q3

REPORT INFORMATION
  Report Type: Spontaneous
  Country: CA (occurrence: CA)
  Receive Date: 20130702
  Receipt Date: 20130702
  Transmission Date: 20140515
  Serious: No
  Sender: FDA-Public Use
  Company Number: CA-TEVA-416157USA

PATIENT
  Sex: Female

DRUGS (1)
  1. PLAN B ONE-STEP [Suspect]
     Indication: CONTRACEPTION
     Route: 048
     Dates: start: 20130426, end: 20130426

REACTIONS (1)
  - Metrorrhagia [Recovered/Resolved]
